FAERS Safety Report 21192643 (Version 1)
Quarter: 2022Q3

REPORT INFORMATION
  Report Type: Report from Study
  Country: CN (occurrence: CN)
  Receive Date: 20220810
  Receipt Date: 20220810
  Transmission Date: 20221027
  Serious: Yes (Other)
  Sender: FDA-Public Use
  Company Number: CN-SUN PHARMACEUTICAL INDUSTRIES LTD-2022R1-347655

PATIENT

DRUGS (6)
  1. METHOTREXATE [Suspect]
     Active Substance: METHOTREXATE
     Indication: Gestational trophoblastic tumour
     Route: 065
  2. VINCRISTINE [Suspect]
     Active Substance: VINCRISTINE
     Indication: Gestational trophoblastic tumour
     Dosage: 2 MILLIGRAM, I.V. BOLUS INJECTION (3 H BEFORE THE START OF ACTINOMYCIN D), DAY 1
     Route: 042
  3. ACTINOMYCIN D [Suspect]
     Active Substance: DACTINOMYCIN
     Indication: Gestational trophoblastic tumour
     Dosage: 200 MICROGRAM/SQ. METER, I.V. INFUSION OVER 30 MIN, DAY 1-5
     Route: 042
  4. CYCLOPHOSPHAMIDE [Suspect]
     Active Substance: CYCLOPHOSPHAMIDE
     Indication: Gestational trophoblastic tumour
     Route: 065
  5. ETOPOSIDE [Suspect]
     Active Substance: ETOPOSIDE
     Indication: Gestational trophoblastic tumour
     Dosage: 100 MILLIGRAM/SQ. METER, I.V. INFUSION OVER 30 MIN, DAY 1-5
     Route: 042
  6. FLOXURIDINE [Suspect]
     Active Substance: FLOXURIDINE
     Indication: Gestational trophoblastic tumour
     Route: 065

REACTIONS (1)
  - Acute myeloid leukaemia [Unknown]
